FAERS Safety Report 7547071-1 (Version None)
Quarter: 2011Q2

REPORT INFORMATION
  Report Type: 
  Country: None (occurrence: None)
  Receive Date: 20110607
  Receipt Date: 20110524
  Transmission Date: 20111010
  Serious: Yes (Hospitalization)
  Sender: FDA-Public Use
  Company Number: B0720242A

PATIENT
  Age: 29 Year
  Sex: Female

DRUGS (13)
  1. AMOXICILLIN TRIHYDRATE [Suspect]
     Indication: LOWER RESPIRATORY TRACT INFECTION
  2. EFAVIRENZ [Concomitant]
  3. FLUCONAZOLE [Concomitant]
  4. HYDROCORTISONE [Suspect]
     Indication: RASH MACULAR
     Dosage: 100 MG / INTRAVENOUS
  5. GANCICILOVIR [Concomitant]
  6. CHLORPHENIRAMINE MALEATE [Concomitant]
  7. LAMIVUDINE-HIV [Concomitant]
  8. FAMCICLOVIR [Suspect]
     Dosage: ORAL
     Route: 048
  9. ACYCLOVIR [Suspect]
     Indication: RETINAL DISORDER
     Dosage: INTRAVENOUS
  10. DAPSONE [Concomitant]
  11. PREDNISOLONE [Concomitant]
  12. TENOFOVIR DISOPROXIL FUMARATE [Concomitant]
  13. DEXAMETHASONE [Concomitant]

REACTIONS (3)
  - VISION BLURRED [None]
  - RASH MACULAR [None]
  - ANGIOEDEMA [None]
